FAERS Safety Report 12291214 (Version 1)
Quarter: 2016Q2

REPORT INFORMATION
  Report Type: Spontaneous
  Country: CN (occurrence: CN)
  Receive Date: 20160421
  Receipt Date: 20160421
  Transmission Date: 20160815
  Serious: Yes (Other)
  Sender: FDA-Public Use
  Company Number: CN-JNJFOC-20160418026

PATIENT
  Age: 17 Year

DRUGS (1)
  1. INFLIXIMAB, RECOMBINANT [Suspect]
     Active Substance: INFLIXIMAB
     Indication: CROHN^S DISEASE
     Dosage: INTERVAL: ONCE EVERY 0, 2, 6 WEEKS
     Route: 042

REACTIONS (2)
  - Anastomotic ulcer [Recovered/Resolved]
  - Pulmonary tuberculosis [Recovering/Resolving]
